FAERS Safety Report 14137322 (Version 3)
Quarter: 2017Q4

REPORT INFORMATION
  Report Type: Spontaneous
  Country: US (occurrence: US)
  Receive Date: 20171027
  Receipt Date: 20171113
  Transmission Date: 20180321
  Serious: Yes (Other)
  Sender: FDA-Public Use
  Company Number: US-SUNOVION-2017SUN004644

PATIENT
  Sex: Male

DRUGS (2)
  1. XANAX [Suspect]
     Active Substance: ALPRAZOLAM
     Dosage: UNK, HS
  2. LATUDA [Suspect]
     Active Substance: LURASIDONE HYDROCHLORIDE
     Indication: BIPOLAR DISORDER
     Dosage: 40 MG, HS
     Route: 048

REACTIONS (10)
  - Fear [Unknown]
  - Somnambulism [Unknown]
  - Fatigue [Not Recovered/Not Resolved]
  - Suicidal ideation [Unknown]
  - Crying [Unknown]
  - Dizziness [Not Recovered/Not Resolved]
  - Nightmare [Unknown]
  - Screaming [Unknown]
  - Insomnia [Not Recovered/Not Resolved]
  - Hypertension [Unknown]
